FAERS Safety Report 16239913 (Version 1)
Quarter: 2019Q2

REPORT INFORMATION
  Report Type: Spontaneous
  Country: FR (occurrence: FR)
  Receive Date: 20190425
  Receipt Date: 20190425
  Transmission Date: 20190711
  Serious: Yes (Other)
  Sender: FDA-Public Use
  Company Number: FR-INDIVIOR LIMITED-INDV-119144-2019

PATIENT
  Age: 54 Year
  Sex: Male

DRUGS (4)
  1. MORPHINE [Suspect]
     Active Substance: MORPHINE
     Indication: PRODUCT USED FOR UNKNOWN INDICATION
     Dosage: UNK
     Route: 051
  2. MORPHINE [Suspect]
     Active Substance: MORPHINE
     Dosage: 50 MG EVERY 15 DAYS
     Route: 042
  3. BUPRENORPHINE. [Suspect]
     Active Substance: BUPRENORPHINE
     Indication: PRODUCT USED FOR UNKNOWN INDICATION
     Dosage: UNK
     Route: 051
  4. MORPHINE [Suspect]
     Active Substance: MORPHINE
     Dosage: 50 MG EVERY 15 DAYS
     Route: 045

REACTIONS (5)
  - Substance abuse [Unknown]
  - Intentional product use issue [Unknown]
  - Cluster headache [Not Recovered/Not Resolved]
  - Facial bones fracture [Unknown]
  - Nasal septum deviation [Unknown]
